FAERS Safety Report 4657383-7 (Version None)
Quarter: 2005Q2

REPORT INFORMATION
  Report Type: 
  Country: None (occurrence: None)
  Receive Date: 20050405
  Receipt Date: 20040713
  Transmission Date: 20051028
  Serious: Yes (Other)
  Sender: FDA-Public Use
  Company Number: 2004047423

PATIENT
  Age: 32 Year
  Sex: Male
  Weight: 63.5036 kg

DRUGS (4)
  1. GEODON [Suspect]
     Indication: MANIA
     Dosage: 80 MG (40 MG, 2 IN 1 D), ORAL
     Route: 048
     Dates: start: 20040628, end: 20040710
  2. BUPROPION HYDROCHLORIDE [Concomitant]
  3. LITHIUM CARBONATE [Concomitant]
  4. MESALAMINE [Concomitant]

REACTIONS (8)
  - BODY TEMPERATURE DECREASED [None]
  - DYSKINESIA [None]
  - FEAR [None]
  - GAIT DISTURBANCE [None]
  - HYPOAESTHESIA [None]
  - PARANOIA [None]
  - RESTLESS LEGS SYNDROME [None]
  - VISUAL DISTURBANCE [None]
